FAERS Safety Report 10697649 (Version 2)
Quarter: 2015Q1

REPORT INFORMATION
  Report Type: Spontaneous
  Country: CN (occurrence: None)
  Receive Date: 20150106
  Receipt Date: 20150109
  Transmission Date: 20150721
  Serious: Yes (Hospitalization)
  Sender: FDA-Public Use
  Company Number: 8003872

PATIENT
  Age: 62 Year
  Sex: Female

DRUGS (1)
  1. LEVOTHYROXINE SODIUM (LEVOTHYROXINE SODIUM) (TABLET) (LEVOTHYROXINE SODIUM)? [Suspect]
     Active Substance: LEVOTHYROXINE SODIUM
     Indication: THYROIDECTOMY
     Route: 048
     Dates: start: 1984, end: 201402

REACTIONS (3)
  - Tracheal cancer [None]
  - Thyroid neoplasm [None]
  - Carcinoid tumour [None]

NARRATIVE: CASE EVENT DATE: 201402
